FAERS Safety Report 14974914 (Version 2)
Quarter: 2018Q3

REPORT INFORMATION
  Report Type: Report from Study
  Country: FR (occurrence: FR)
  Receive Date: 20180605
  Receipt Date: 20180705
  Transmission Date: 20181010
  Serious: Yes (Death, Other)
  Sender: FDA-Public Use
  Company Number: FR-SEATTLE GENETICS-2017SGN00931

PATIENT
  Age: 71 Year
  Sex: Female
  Weight: 61 kg

DRUGS (12)
  1. CALCITRIOL. [Concomitant]
     Active Substance: CALCITRIOL
     Indication: HYPOPARATHYROIDISM
     Dosage: UNK, QD
     Route: 048
     Dates: end: 20180408
  2. BENDAMUSTINE [Concomitant]
     Active Substance: BENDAMUSTINE
     Indication: ENTEROPATHY-ASSOCIATED T-CELL LYMPHOMA
     Dosage: UNK
  3. BISOPROLOL [Concomitant]
     Active Substance: BISOPROLOL
     Indication: HYPERTENSION
     Dosage: UNK, QD
     Route: 048
     Dates: end: 20180408
  4. CALCIUM CARBONATE. [Concomitant]
     Active Substance: CALCIUM CARBONATE
     Indication: HYPOPARATHYROIDISM
     Dosage: UNK, QD
     Route: 048
     Dates: end: 20180408
  5. VALACICLOVIR HYDROCHLORIDE [Concomitant]
     Active Substance: VALACYCLOVIR HYDROCHLORIDE
     Indication: HERPES ZOSTER
     Dosage: UNK, QD
     Route: 048
     Dates: start: 20160218, end: 20180408
  6. BENDAMUSTINE [Concomitant]
     Active Substance: BENDAMUSTINE
     Dosage: UNK
  7. SULFAMETHOXAZOLE [Concomitant]
     Active Substance: SULFAMETHOXAZOLE
     Indication: PROPHYLAXIS
     Dosage: 110 MG, 3/WEEK
     Route: 048
     Dates: end: 20180408
  8. BENDAMUSTINE [Concomitant]
     Active Substance: BENDAMUSTINE
     Dosage: UNK
  9. BISOPROLOL [Concomitant]
     Active Substance: BISOPROLOL
     Dosage: UNK, QD
     Route: 048
     Dates: end: 20180408
  10. VORINOSTAT [Concomitant]
     Active Substance: VORINOSTAT
     Indication: LYMPHOMA
     Dosage: UNK UNK, QD
     Route: 048
     Dates: start: 20180219, end: 20180408
  11. GEMCITABINE [Concomitant]
     Active Substance: GEMCITABINE\GEMCITABINE HYDROCHLORIDE
     Dosage: UNK
     Dates: start: 20170830
  12. BRENTUXIMAB VEDOTIN?MPI [Suspect]
     Active Substance: BRENTUXIMAB VEDOTIN
     Indication: ENTEROPATHY-ASSOCIATED T-CELL LYMPHOMA
     Dosage: 110 MG, UNK
     Route: 042
     Dates: start: 20170208, end: 20170720

REACTIONS (8)
  - Pain [Fatal]
  - Enteropathy-associated T-cell lymphoma [Fatal]
  - Facial paralysis [Unknown]
  - Weight increased [Unknown]
  - Skin plaque [Unknown]
  - Nodule [Unknown]
  - Mastitis [Unknown]
  - Off label use [Unknown]

NARRATIVE: CASE EVENT DATE: 20170125
